FAERS Safety Report 9206679 (Version 1)
Quarter: 2013Q1

REPORT INFORMATION
  Report Type: Spontaneous
  Country: US (occurrence: None)
  Receive Date: 20120731
  Receipt Date: 20120731
  Transmission Date: 20140127
  Serious: Yes (Hospitalization)
  Sender: FDA-Public Use
  Company Number: AMAG201203008

PATIENT
  Age: 54 Year
  Sex: Male

DRUGS (1)
  1. FERAHEME (FERUMOXYTOL) INJECTION, 510MG [Suspect]
     Indication: ANAEMIA
     Route: 042
     Dates: start: 20120418, end: 20120418

REACTIONS (2)
  - Cardiac arrest [None]
  - Nausea [None]
